FAERS Safety Report 8059553-7 (Version None)
Quarter: 2012Q1

REPORT INFORMATION
  Report Type: 
  Country: None (occurrence: None)
  Receive Date: 20120119
  Receipt Date: 20120119
  Transmission Date: 20120608
  Serious: Yes (Hospitalization)
  Sender: FDA-Public Use
  Company Number: None

PATIENT
  Sex: Female
  Weight: 75.6 kg

DRUGS (1)
  1. DABGATRAN 150 MG CAPSULES [Suspect]
     Indication: ATRIAL FIBRILLATION
     Dosage: 150 MG DAILY BY MOUTH
     Route: 048
     Dates: start: 20111221, end: 20120102

REACTIONS (2)
  - DIVERTICULUM INTESTINAL HAEMORRHAGIC [None]
  - HAEMOGLOBIN DECREASED [None]
